FAERS Safety Report 8001464-7 (Version None)
Quarter: 2011Q4

REPORT INFORMATION
  Report Type: 
  Country: None (occurrence: None)
  Receive Date: 20111222
  Receipt Date: 20111213
  Transmission Date: 20120403
  Serious: Yes (Hospitalization)
  Sender: FDA-Public Use
  Company Number: US-JNJFOC-20111206054

PATIENT
  Sex: Female
  Weight: 137.44 kg

DRUGS (6)
  1. NEXIUM [Concomitant]
     Route: 065
  2. LIALDA [Concomitant]
     Route: 065
  3. REMICADE [Suspect]
     Indication: CROHN'S DISEASE
     Route: 042
  4. LOMOTIL [Concomitant]
     Route: 065
  5. ATACAND [Concomitant]
     Route: 065
  6. REMICADE [Suspect]
     Dosage: 7 VIALS
     Route: 042
     Dates: start: 20110928

REACTIONS (2)
  - RASH PRURITIC [None]
  - PANCREATITIS [None]
